FAERS Safety Report 6382623-6 (Version None)
Quarter: 2009Q3

REPORT INFORMATION
  Report Type: 
  Country: None (occurrence: None)
  Receive Date: 20090924
  Receipt Date: 20090414
  Transmission Date: 20100115
  Serious: Yes (Hospitalization)
  Sender: FDA-Public Use
  Company Number: WAES 0904USA02028

PATIENT
  Age: 84 Year
  Sex: Female

DRUGS (6)
  1. TAB VYTORIN 10-10 MG,   10-40 MG [Suspect]
     Dosage: 10-10 MG/DAILY/PO; 10-40 MG/DAILY/PO
     Route: 048
     Dates: start: 20090312
  2. ALTACE [Concomitant]
  3. CARTIA XT [Concomitant]
  4. NEXIUM [Concomitant]
  5. TOPROL-XL [Concomitant]
  6. ASPIRIN [Concomitant]

REACTIONS (2)
  - CHOLELITHIASIS [None]
  - RASH [None]
